FAERS Safety Report 25188371 (Version 5)
Quarter: 2025Q3

REPORT INFORMATION
  Report Type: Spontaneous
  Country: JP (occurrence: JP)
  Receive Date: 20250411
  Receipt Date: 20250924
  Transmission Date: 20251021
  Serious: Yes (Hospitalization, Other)
  Sender: GLAXOSMITHKLINE
  Company Number: JP-GSKJP-JP2025JPN041094AA

PATIENT
  Age: 81 Year
  Sex: Female
  Weight: 35.1 kg

DRUGS (26)
  1. DAPRODUSTAT [Suspect]
     Active Substance: DAPRODUSTAT
     Indication: Nephrogenic anaemia
     Dosage: 4 MG, 1D, AFTER BREAKFAST
  2. ASPIRIN [Concomitant]
     Active Substance: ASPIRIN
     Indication: Cerebral infarction
     Dosage: 100 MG, 1D, AFTER BREAKFAST
  3. LANSOPRAZOLE [Concomitant]
     Active Substance: LANSOPRAZOLE
     Dosage: 15 MG, 1D, AFTER BREAKFAST
  4. POTASSIUM ASPARTATE [Concomitant]
     Active Substance: POTASSIUM ASPARTATE
     Indication: Hypokalaemia
     Dosage: 900 MG, TID, AFTER BREAKFAST, LUNCH AND DINNER
  5. MIYA-BM [Concomitant]
     Active Substance: CLOSTRIDIUM BUTYRICUM SPORES STRAIN M-55
     Dosage: 3 DF, TID, AFTER BREAKFAST, LUNCH AND DINNER
  6. PRAVASTATIN SODIUM [Concomitant]
     Active Substance: PRAVASTATIN SODIUM
     Dosage: 5 MG, 1D, AFTER BREAKFAST
  7. PRAVASTATIN SODIUM [Concomitant]
     Active Substance: PRAVASTATIN SODIUM
     Dosage: 2.5 MG, 1D, AFTER BREAKFAST
  8. ELDECALCITOL [Concomitant]
     Active Substance: ELDECALCITOL
     Dosage: 0.75 UG, 1D, AFTER BREAKFAST
  9. CILOSTAZOL [Concomitant]
     Active Substance: CILOSTAZOL
     Indication: Cerebral infarction
     Dosage: 200 MG, BID, AFTER BREAKFAST AND DINNER
  10. MIRTAZAPINE [Concomitant]
     Active Substance: MIRTAZAPINE
     Dosage: 15 MG, 1D
  11. NIFEDIPINE [Concomitant]
     Active Substance: NIFEDIPINE
  12. DOXAZOSIN MESYLATE [Concomitant]
     Active Substance: DOXAZOSIN MESYLATE
     Dosage: 1 MG, 1D, AFTER BREAKFAST
  13. ALFACALCIDOL [Concomitant]
     Active Substance: ALFACALCIDOL
     Dosage: 1 ?G, 1D, AFTER BREAKFAST
  14. REPAGLINIDE [Concomitant]
     Active Substance: REPAGLINIDE
     Indication: Diabetes mellitus management
     Dosage: 0.5 MG, BID
  15. REPAGLINIDE [Concomitant]
     Active Substance: REPAGLINIDE
     Dosage: 0.5 MG, BID
  16. REPAGLINIDE [Concomitant]
     Active Substance: REPAGLINIDE
     Dosage: 1 MG, BID
  17. REPAGLINIDE [Concomitant]
     Active Substance: REPAGLINIDE
     Dosage: 1.5 MG, BID
  18. JANUVIA [Concomitant]
     Active Substance: SITAGLIPTIN PHOSPHATE
     Indication: Diabetes mellitus management
     Dosage: 25 MG, 1D, AFTER BREAKFAST
  19. INSULIN HUMAN [Concomitant]
     Active Substance: INSULIN HUMAN
     Indication: Diabetes mellitus management
  20. INSULIN GLARGINE [Concomitant]
     Active Substance: INSULIN GLARGINE
     Indication: Diabetes mellitus management
  21. POTASSIUM ASPARTATE [Concomitant]
     Active Substance: POTASSIUM ASPARTATE
     Indication: Blood potassium decreased
     Dosage: 900 MG, TID, AFTER BREAKFAST, LUNCH AND DINNER
  22. Aspirin dialuminate mixt [Concomitant]
     Indication: Cerebral infarction
     Dosage: 1 DF, 1D, AFTER BREAKFAST
  23. TU-100 [Concomitant]
     Active Substance: ASIAN GINSENG\GINGER\ZANTHOXYLUM PIPERITUM FRUIT PULP
     Dosage: 3 PACKETS, TID, AFTER BREAKFAST, LUNCH AND DINNER
  24. AMLODIPINE BESYLATE [Concomitant]
     Active Substance: AMLODIPINE BESYLATE
     Dosage: 2.5 MG, 1D, AFTER BREAKFAST
  25. VADADUSTAT [Concomitant]
     Active Substance: VADADUSTAT
     Indication: Haemoglobin decreased
     Dosage: 300 MG, 1D, AFTER BREAKFAST
  26. VADADUSTAT [Concomitant]
     Active Substance: VADADUSTAT
     Indication: Nephrogenic anaemia

REACTIONS (10)
  - Lacunar infarction [Recovering/Resolving]
  - Paralysis [Unknown]
  - Depressed level of consciousness [Unknown]
  - Ventricular tachycardia [Recovering/Resolving]
  - Hypokalaemia [Recovered/Resolved]
  - Haemoglobin increased [Recovered/Resolved]
  - Dysarthria [Recovered/Resolved]
  - Decreased appetite [Unknown]
  - Erythema [Recovered/Resolved]
  - Constipation [Recovered/Resolved]

NARRATIVE: CASE EVENT DATE: 20250227
